FAERS Safety Report 4809977-3 (Version None)
Quarter: 2005Q4

REPORT INFORMATION
  Report Type: 
  Country: None (occurrence: None)
  Receive Date: 20051024
  Receipt Date: 20051024
  Transmission Date: 20060501
  Serious: Yes (Other)
  Sender: FDA-Public Use
  Company Number: None

PATIENT
  Age: 40 Year
  Sex: Male
  Weight: 92.9874 kg

DRUGS (6)
  1. ZYDIS [Suspect]
     Indication: PSYCHOTIC DISORDER
     Dosage: 30MG   NIGHTLY   PO
     Route: 048
     Dates: start: 20050202, end: 20050421
  2. ZYDIS [Suspect]
     Indication: PSYCHOTIC DISORDER
     Dosage: 10MG  NIGHTLY  PO
     Route: 048
     Dates: start: 20050421, end: 20050502
  3. DIVALPROEX SODIUM [Concomitant]
  4. THIOTHIXENE [Concomitant]
  5. TRIHEXYPHENIDYL HCL [Concomitant]
  6. LITHIUM [Concomitant]

REACTIONS (3)
  - DIABETES MELLITUS [None]
  - GLYCOSYLATED HAEMOGLOBIN INCREASED [None]
  - WEIGHT INCREASED [None]
